FAERS Safety Report 5832430-5 (Version None)
Quarter: 2008Q3

REPORT INFORMATION
  Report Type: 
  Country: None (occurrence: None)
  Receive Date: 20080804
  Receipt Date: 20080419
  Transmission Date: 20090109
  Serious: No
  Sender: FDA-Public Use
  Company Number: GR-PFIZER INC-2008034764

PATIENT
  Age: 41 Year
  Sex: Female
  Weight: 60 kg

DRUGS (2)
  1. XANAX [Suspect]
     Dosage: TEXT:90 TABLETS TOTAL IN SUICIDE ATTEMPT
     Route: 048
  2. EFFEXOR XR [Suspect]
     Dosage: TEXT:APPROX. 20-40 CAPS TOTAL-SUICIDE ATTEMPT
     Route: 048

REACTIONS (1)
  - NO ADVERSE EVENT [None]
